FAERS Safety Report 10790377 (Version 2)
Quarter: 2015Q1

REPORT INFORMATION
  Report Type: Report from Study
  Country: NL (occurrence: NL)
  Receive Date: 20150212
  Receipt Date: 20150302
  Transmission Date: 20150721
  Serious: Yes (Other)
  Sender: FDA-Public Use
  Company Number: NL-ABBVIE-14P-114-1246522-00

PATIENT
  Sex: Male
  Weight: 101 kg

DRUGS (2)
  1. LUCRIN DEPOT [Suspect]
     Active Substance: LEUPROLIDE ACETATE
     Indication: PROSTATE CANCER
     Route: 058
     Dates: start: 20120423
  2. PERINDOPRIL [Concomitant]
     Active Substance: PERINDOPRIL
     Indication: HYPERTENSION
     Route: 048

REACTIONS (7)
  - Arrhythmia [Not Recovered/Not Resolved]
  - Discomfort [Not Recovered/Not Resolved]
  - Muscle spasms [Not Recovered/Not Resolved]
  - Proctalgia [Not Recovered/Not Resolved]
  - Anal inflammation [Not Recovered/Not Resolved]
  - Back pain [Not Recovered/Not Resolved]
  - Anorectal discomfort [Not Recovered/Not Resolved]

NARRATIVE: CASE EVENT DATE: 2012
